FAERS Safety Report 7464170-3 (Version None)
Quarter: 2011Q2

REPORT INFORMATION
  Report Type: 
  Country: None (occurrence: None)
  Receive Date: 20110506
  Receipt Date: 20110502
  Transmission Date: 20111010
  Serious: Yes (Disabling, Other)
  Sender: FDA-Public Use
  Company Number: US-MERCK-1008USA04176

PATIENT
  Sex: Female

DRUGS (1)
  1. FOSAMAX [Suspect]
     Route: 048
     Dates: end: 20100101

REACTIONS (6)
  - LIMB ASYMMETRY [None]
  - DISABILITY [None]
  - FRACTURE [None]
  - OEDEMA PERIPHERAL [None]
  - FEMUR FRACTURE [None]
  - HIP FRACTURE [None]
